FAERS Safety Report 11372000 (Version 1)
Quarter: 2015Q3

REPORT INFORMATION
  Report Type: Report from Study
  Country: US (occurrence: US)
  Receive Date: 20150812
  Receipt Date: 20150812
  Transmission Date: 20151125
  Serious: Yes (Hospitalization)
  Sender: FDA-Public Use
  Company Number: US-ACTELION-A-NJ2015-117879

PATIENT
  Age: 55 Year
  Sex: Female

DRUGS (4)
  1. MACITENTAN [Suspect]
     Active Substance: MACITENTAN
     Indication: PULMONARY HYPERTENSION
     Dosage: 10 MG (TITER), UNK
     Route: 048
     Dates: start: 201412
  2. TREPROSTINIL DIOLAMIN [Concomitant]
     Active Substance: TREPROSTINIL DIOLAMINE
     Dosage: 1.375 UNK, TID
     Dates: start: 201506
  3. REVATIO [Concomitant]
     Active Substance: SILDENAFIL CITRATE
     Dosage: 80 MG, TID
     Dates: start: 201407
  4. ELIQUIS [Concomitant]
     Active Substance: APIXABAN
     Dosage: 5 MG, BID

REACTIONS (9)
  - Diverticulitis intestinal haemorrhagic [Unknown]
  - Functional gastrointestinal disorder [Unknown]
  - Rectal haemorrhage [Recovered/Resolved]
  - Gastrooesophageal reflux disease [Unknown]
  - Diarrhoea [Unknown]
  - Dyspepsia [Unknown]
  - Somnolence [Unknown]
  - Headache [Unknown]
  - Haematochezia [Recovered/Resolved]

NARRATIVE: CASE EVENT DATE: 20150628
